FAERS Safety Report 8869677 (Version 1)
Quarter: 2012Q4

REPORT INFORMATION
  Report Type: 
  Country: US (occurrence: US)
  Receive Date: 20121026
  Receipt Date: 20121026
  Transmission Date: 20130627
  Serious: No
  Sender: FDA-Public Use
  Company Number: US-AMGEN-USASP2012045821

PATIENT
  Age: 66 Year
  Sex: Male
  Weight: 27.21 kg

DRUGS (12)
  1. ENBREL [Suspect]
     Indication: RHEUMATOID ARTHRITIS
     Dosage: 25 mg, 2 times/wk
     Route: 058
  2. PREDNISONE [Concomitant]
     Dosage: 1 mg, UNK
  3. ALENDRONATE [Concomitant]
     Dosage: 70 mg, UNK
  4. OMEPRAZOLE [Concomitant]
     Dosage: 10 mg, UNK
  5. PAROXETINE [Concomitant]
     Dosage: 10 mg, UNK
  6. ADVAIR [Concomitant]
     Dosage: 100 UNK, UNK
  7. CRESTOR [Concomitant]
     Dosage: 10 mg, UNK
  8. METOPROLOL TARTRATE [Concomitant]
     Dosage: 25 mg, UNK
  9. SPIRIVA [Concomitant]
     Dosage: 81 mg, UNK
  10. CALCIUM [Concomitant]
     Dosage: 500 mg, UNK
  11. B-12 [Concomitant]
     Dosage: 1000 mug, UNK
  12. D3 [Concomitant]
     Dosage: 1000 UNK, UNK

REACTIONS (1)
  - Pneumonia [Unknown]
